FAERS Safety Report 17843285 (Version 1)
Quarter: 2020Q2

REPORT INFORMATION
  Report Type: Spontaneous
  Country: CA (occurrence: CA)
  Receive Date: 20200530
  Receipt Date: 20200530
  Transmission Date: 20200714
  Serious: Yes (Life-Threatening, Other)
  Sender: FDA-Public Use
  Company Number: CA-TEVA-2020-CA-1241368

PATIENT
  Age: 68 Year
  Sex: Female

DRUGS (4)
  1. DEXAMETHASONE. [Concomitant]
     Active Substance: DEXAMETHASONE
  2. RANITIDINE. [Concomitant]
     Active Substance: RANITIDINE
  3. CARBOPLATIN. [Concomitant]
     Active Substance: CARBOPLATIN
  4. PACLITAXEL. [Suspect]
     Active Substance: PACLITAXEL
     Indication: LUNG NEOPLASM MALIGNANT
     Dosage: 12.8571 MG/M2 DAILY;
     Route: 042

REACTIONS (4)
  - Agitation [Unknown]
  - Dyspnoea [Unknown]
  - Chest discomfort [Unknown]
  - Skin discolouration [Unknown]
